FAERS Safety Report 7244988-2 (Version None)
Quarter: 2011Q1

REPORT INFORMATION
  Report Type: 
  Country: None (occurrence: None)
  Receive Date: 20110118
  Receipt Date: 20110104
  Transmission Date: 20110831
  Serious: Yes (Death, Hospitalization)
  Sender: FDA-Public Use
  Company Number: DSA_43491_2010

PATIENT
  Age: 56 Year
  Sex: Male

DRUGS (12)
  1. ENALAPRIL MALEATE [Suspect]
     Indication: PRODUCT USED FOR UNKNOWN INDICATION
     Dosage: (5 MG QD ORAL)
     Route: 048
  2. ORENCIA [Suspect]
     Indication: RHEUMATOID ARTHRITIS
     Dosage: (1000 MG 1X/4 WEEKS INTRAVENOUS (NOT OTHERWISE SPECIFIED))
     Route: 042
  3. ALLOPURINOL [Suspect]
     Indication: PRODUCT USED FOR UNKNOWN INDICATION
     Dosage: (300 MG QD)
  4. CORTISONE [Concomitant]
  5. NOVASEN [Concomitant]
  6. PLAQUENIL [Suspect]
     Indication: PRODUCT USED FOR UNKNOWN INDICATION
     Dosage: (400 MG, FREQUENCY UNKNOWN)
  7. ACETAMINOPHEN W/ CODEINE [Concomitant]
  8. BISOPROLOL (BISOPROLOL) [Suspect]
     Indication: PRODUCT USED FOR UNKNOWN INDICATION
     Dosage: (5 MG QD)
  9. NORVASC [Suspect]
     Indication: PRODUCT USED FOR UNKNOWN INDICATION
     Dosage: (10 MG, FREQUENCY UNKNOWN)
  10. NAPOXENO /00256201/  (APO-NAPROXENO - NAPROXEN) (NOT SPECIFIED) [Suspect]
     Indication: PRODUCT USED FOR UNKNOWN INDICATION
     Dosage: (500 MG BID)
  11. ASPIRIN [Suspect]
     Indication: PRODUCT USED FOR UNKNOWN INDICATION
     Dosage: (325 MG QD)
  12. HYDROCHLOROTHIAZIDE [Suspect]
     Indication: PRODUCT USED FOR UNKNOWN INDICATION
     Dosage: (25 MG QOD)

REACTIONS (9)
  - HAEMATOCHEZIA [None]
  - TRANSIENT ISCHAEMIC ATTACK [None]
  - DIALYSIS [None]
  - SURGICAL PROCEDURE REPEATED [None]
  - AORTIC VALVE REPAIR [None]
  - SEPSIS [None]
  - RENAL FAILURE [None]
  - ENDOCARDITIS [None]
  - RECTAL HAEMORRHAGE [None]
